FAERS Safety Report 16881086 (Version 4)
Quarter: 2025Q3

REPORT INFORMATION
  Report Type: Spontaneous
  Country: EU (occurrence: EU)
  Receive Date: 20191003
  Receipt Date: 20250701
  Transmission Date: 20251021
  Serious: Yes (Death, Life-Threatening, Other)
  Sender: AUROBINDO
  Company Number: EU-PFM-2019-11487

PATIENT
  Age: 60 Year
  Sex: Female

DRUGS (6)
  1. CAPECITABINE [Suspect]
     Active Substance: CAPECITABINE
     Indication: Myelodysplastic syndrome
     Route: 048
  2. CAPECITABINE [Suspect]
     Active Substance: CAPECITABINE
     Indication: Breast cancer metastatic
  3. EVEROLIMUS [Suspect]
     Active Substance: EVEROLIMUS
     Indication: Intraductal proliferative breast lesion
     Route: 065
  4. NAVELBINE [Suspect]
     Active Substance: VINORELBINE TARTRATE
     Indication: Breast cancer metastatic
     Route: 048
  5. FULVESTRANT [Concomitant]
     Active Substance: FULVESTRANT
     Indication: Intraductal proliferative breast lesion
     Route: 065
  6. PALBOCICLIB [Concomitant]
     Active Substance: PALBOCICLIB
     Indication: Intraductal proliferative breast lesion
     Route: 065

REACTIONS (21)
  - Hepatic cytolysis [Fatal]
  - Death [Fatal]
  - Neutropenia [Not Recovered/Not Resolved]
  - Thrombocytopenia [Not Recovered/Not Resolved]
  - General physical condition abnormal [Not Recovered/Not Resolved]
  - Decreased appetite [Not Recovered/Not Resolved]
  - Vomiting [Not Recovered/Not Resolved]
  - Erythema [Not Recovered/Not Resolved]
  - Dermatitis exfoliative generalised [Not Recovered/Not Resolved]
  - Mucosal inflammation [Not Recovered/Not Resolved]
  - Nausea [Not Recovered/Not Resolved]
  - Sepsis [Not Recovered/Not Resolved]
  - Palmar-plantar erythrodysaesthesia syndrome [Not Recovered/Not Resolved]
  - Renal impairment [Not Recovered/Not Resolved]
  - Vitamin K decreased [Not Recovered/Not Resolved]
  - Hepatic function abnormal [Not Recovered/Not Resolved]
  - General physical health deterioration [Not Recovered/Not Resolved]
  - Intraductal proliferative breast lesion [Unknown]
  - Malignant neoplasm progression [Unknown]
  - Vitamin K deficiency [Not Recovered/Not Resolved]
  - Decreased appetite [Not Recovered/Not Resolved]
